FAERS Safety Report 9903001 (Version 1)
Quarter: 2014Q1

REPORT INFORMATION
  Report Type: Report from Study
  Country: US (occurrence: US)
  Receive Date: 20140217
  Receipt Date: 20140217
  Transmission Date: 20141002
  Serious: Yes (Death, Hospitalization)
  Sender: FDA-Public Use
  Company Number: PHEH2014US002992

PATIENT
  Age: 32 Year
  Sex: Male
  Weight: 77 kg

DRUGS (2)
  1. TASIGNA [Suspect]
     Indication: CHRONIC MYELOID LEUKAEMIA
     Dosage: 300 MG, BID
     Route: 048
     Dates: start: 20130901, end: 20131115
  2. TASIGNA [Suspect]
     Dosage: 300 MG, QD
     Route: 048
     Dates: start: 20131230, end: 20140131

REACTIONS (5)
  - Immune thrombocytopenic purpura [Fatal]
  - Haemorrhage [Fatal]
  - Petechiae [Fatal]
  - Megakaryocytes decreased [Unknown]
  - Haematemesis [Unknown]
